FAERS Safety Report 8599898 (Version 7)
Quarter: 2013Q2

REPORT INFORMATION
  Report Type: Report from Study
  Country: CA (occurrence: CA)
  Receive Date: 20120605
  Receipt Date: 20130618
  Transmission Date: 20140414
  Serious: Yes (Death, Other)
  Sender: FDA-Public Use
  Company Number: CA-ABBOTT-12P-028-0939575-00

PATIENT
  Age: 89 Year
  Sex: Male
  Weight: 99.88 kg

DRUGS (2)
  1. LUPRON DEPOT 30 MG [Suspect]
     Indication: PROSTATE CANCER
     Route: 030
     Dates: start: 20060309
  2. PLAVIX [Concomitant]
     Indication: PRODUCT USED FOR UNKNOWN INDICATION

REACTIONS (7)
  - Cerebrovascular accident [Fatal]
  - Heart rate irregular [Not Recovered/Not Resolved]
  - Heart valve incompetence [Unknown]
  - Heart valve stenosis [Unknown]
  - Heart sounds abnormal [Unknown]
  - Carotid artery occlusion [Unknown]
  - Cardiac murmur [Unknown]
